FAERS Safety Report 4959477-5 (Version None)
Quarter: 2006Q1

REPORT INFORMATION
  Report Type: 
  Country: None (occurrence: None)
  Receive Date: 20060331
  Receipt Date: 20050812
  Transmission Date: 20060701
  Serious: Yes (Hospitalization)
  Sender: FDA-Public Use
  Company Number: US-MERCK-0508USA02637

PATIENT
  Age: 68 Year
  Sex: Female
  Weight: 70 kg

DRUGS (14)
  1. VIOXX [Suspect]
     Indication: BACK PAIN
     Route: 048
     Dates: start: 20000724, end: 20001206
  2. VIOXX [Suspect]
     Route: 048
     Dates: start: 20001207, end: 20001210
  3. VIOXX [Suspect]
     Route: 048
     Dates: start: 20001211, end: 20030919
  4. VIOXX [Suspect]
     Route: 048
     Dates: start: 20030920, end: 20040516
  5. VIOXX [Suspect]
     Indication: INFLAMMATION
     Route: 048
     Dates: start: 20000724, end: 20001206
  6. VIOXX [Suspect]
     Route: 048
     Dates: start: 20001207, end: 20001210
  7. VIOXX [Suspect]
     Route: 048
     Dates: start: 20001211, end: 20030919
  8. VIOXX [Suspect]
     Route: 048
     Dates: start: 20030920, end: 20040516
  9. PRILOSEC [Concomitant]
     Route: 065
  10. DETROL [Concomitant]
     Route: 065
  11. KENALOG [Concomitant]
     Route: 065
  12. ATIVAN [Concomitant]
     Route: 065
  13. FLEXERIL [Concomitant]
     Route: 065
  14. VICODIN [Concomitant]
     Route: 065

REACTIONS (17)
  - ARRHYTHMIA [None]
  - BLOOD PRESSURE ABNORMAL [None]
  - CHRONIC OBSTRUCTIVE PULMONARY DISEASE [None]
  - CORONARY ARTERY DISEASE [None]
  - DIVERTICULUM [None]
  - GASTROINTESTINAL HAEMORRHAGE [None]
  - GASTROOESOPHAGEAL REFLUX DISEASE [None]
  - HAEMORRHOIDS [None]
  - HYPERLIPIDAEMIA [None]
  - HYPERTENSION [None]
  - LUNG INFILTRATION [None]
  - MUSCLE SPASMS [None]
  - MYOCARDIAL INFARCTION [None]
  - NON-CARDIAC CHEST PAIN [None]
  - PULMONARY CONGESTION [None]
  - SPINAL DISORDER [None]
  - UTERINE DISORDER [None]
